FAERS Safety Report 24121671 (Version 1)
Quarter: 2024Q3

REPORT INFORMATION
  Report Type: Spontaneous
  Country: US (occurrence: None)
  Receive Date: 20240720
  Receipt Date: 20240720
  Transmission Date: 20241016
  Serious: Yes (Life-Threatening, Hospitalization, Disabling)
  Sender: Public
  Company Number: None

PATIENT
  Age: 34 Year
  Sex: Female
  Weight: 58.5 kg

DRUGS (1)
  1. LAGEVRIO [Suspect]
     Active Substance: MOLNUPIRAVIR
     Indication: COVID-19
     Dosage: OTHER QUANTITY : 40 CAPSULE(S);?OTHER FREQUENCY : 4 CAPSULES 2X/DAY;?
     Route: 048
     Dates: start: 20240717, end: 20240718

REACTIONS (1)
  - Anaphylactic reaction [None]

NARRATIVE: CASE EVENT DATE: 20240718
